FAERS Safety Report 24455232 (Version 2)
Quarter: 2024Q4

REPORT INFORMATION
  Report Type: Report from Study
  Country: US (occurrence: US)
  Receive Date: 20241017
  Receipt Date: 20241018
  Transmission Date: 20250115
  Serious: No
  Sender: ROCHE
  Company Number: US-ROCHE-3492048

PATIENT
  Age: 63 Year
  Sex: Female
  Weight: 51.71 kg

DRUGS (3)
  1. RITUXAN HYCELA [Suspect]
     Active Substance: HYALURONIDASE (HUMAN RECOMBINANT)\RITUXIMAB
     Indication: Mantle cell lymphoma
     Dosage: 2MG, 1400MG
     Route: 065
  2. CATHFLO ACTIVASE [Suspect]
     Active Substance: ALTEPLASE
     Indication: Mantle cell lymphoma
     Dosage: 2MG, 1400MG
     Route: 065
  3. RITUXAN [Suspect]
     Active Substance: RITUXIMAB
     Indication: Mantle cell lymphoma
     Route: 065

REACTIONS (2)
  - Off label use [Unknown]
  - No adverse event [Unknown]
